FAERS Safety Report 5291458-7 (Version None)
Quarter: 2007Q2

REPORT INFORMATION
  Report Type: 
  Country: None (occurrence: None)
  Receive Date: 20070403
  Receipt Date: 20070319
  Transmission Date: 20071010
  Serious: Yes (Hospitalization)
  Sender: FDA-Public Use
  Company Number: 2007US000535

PATIENT
  Age: 72 Year
  Sex: Female
  Weight: 113.4 kg

DRUGS (5)
  1. AMEVIVE [Suspect]
     Indication: PSORIASIS
     Dosage: INTRAMUSCULAR
     Route: 030
     Dates: start: 20041214
  2. DETROL [Concomitant]
  3. METFORMIN HCL [Concomitant]
  4. SIMVASTATIN [Concomitant]
  5. ENALAPRIL MALEATE [Concomitant]

REACTIONS (5)
  - DIVERTICULUM [None]
  - FEMALE GENITAL TRACT FISTULA [None]
  - HAEMOGLOBIN DECREASED [None]
  - HYPOTENSION [None]
  - POST PROCEDURAL COMPLICATION [None]
